FAERS Safety Report 6075522-0 (Version None)
Quarter: 2009Q1

REPORT INFORMATION
  Report Type: 
  Country: None (occurrence: None)
  Receive Date: 20090210
  Receipt Date: 20090210
  Transmission Date: 20090719
  Serious: Yes (Hospitalization)
  Sender: FDA-Public Use
  Company Number: None

PATIENT
  Age: 57 Year
  Sex: Male
  Weight: 49.4 kg

DRUGS (1)
  1. LEVOFLOXACIN [Suspect]
     Indication: PNEUMONIA
     Dosage: 500MG DAILY IV BOLUS
     Route: 040
     Dates: start: 20090203, end: 20090204

REACTIONS (2)
  - GRAND MAL CONVULSION [None]
  - NO THERAPEUTIC RESPONSE [None]
